FAERS Safety Report 8222025-0 (Version None)
Quarter: 2012Q1

REPORT INFORMATION
  Report Type: 
  Country: None (occurrence: None)
  Receive Date: 20120320
  Receipt Date: 20120305
  Transmission Date: 20120608
  Serious: Yes (Hospitalization, Other)
  Sender: FDA-Public Use
  Company Number: RO-WATSON-2012-04629

PATIENT
  Age: 18 Year
  Sex: Female

DRUGS (1)
  1. BACLOFEN [Suspect]
     Indication: TOOTHACHE
     Dosage: 120 MG, SINGLE
     Route: 048

REACTIONS (10)
  - RESPIRATORY ARREST [None]
  - COMA [None]
  - HYPERTENSION [None]
  - OVERDOSE [None]
  - HYPOTONIA [None]
  - MIOSIS [None]
  - SUPRAVENTRICULAR TACHYCARDIA [None]
  - HYPOREFLEXIA [None]
  - LEUKOCYTOSIS [None]
  - HYPERGLYCAEMIA [None]
